FAERS Safety Report 14365270 (Version 1)
Quarter: 2018Q1

REPORT INFORMATION
  Report Type: Spontaneous
  Country: GB (occurrence: GB)
  Receive Date: 20180108
  Receipt Date: 20180108
  Transmission Date: 20180509
  Serious: Yes (Death)
  Sender: FDA-Public Use
  Company Number: GB-BAUSCH-BL-2017-036109

PATIENT
  Age: 73 Year
  Sex: Male

DRUGS (4)
  1. LORAZEPAM. [Suspect]
     Active Substance: LORAZEPAM
     Indication: PRODUCT USED FOR UNKNOWN INDICATION
     Route: 065
     Dates: start: 20160928, end: 20161005
  2. RISPERIDONE. [Suspect]
     Active Substance: RISPERIDONE
     Indication: AGGRESSION
     Route: 065
     Dates: start: 20160928, end: 20161005
  3. ZOPICLONE [Concomitant]
     Active Substance: ZOPICLONE
     Indication: SLEEP DISORDER
  4. RISPERIDONE. [Suspect]
     Active Substance: RISPERIDONE
     Dosage: IN TOTAL
     Route: 065
     Dates: start: 20161020

REACTIONS (10)
  - Aphasia [Fatal]
  - Decreased appetite [Fatal]
  - Staring [Fatal]
  - Somnolence [Fatal]
  - Myoclonus [Fatal]
  - Incontinence [Fatal]
  - Dementia Alzheimer^s type [Fatal]
  - Feeling abnormal [Fatal]
  - Dysphagia [Fatal]
  - Gait disturbance [Fatal]
